FAERS Safety Report 6831020-5 (Version None)
Quarter: 2010Q3

REPORT INFORMATION
  Report Type: 
  Country: None (occurrence: None)
  Receive Date: 20100712
  Receipt Date: 20100712
  Transmission Date: 20110219
  Serious: Yes (Other)
  Sender: FDA-Public Use
  Company Number: None

PATIENT
  Sex: Female
  Weight: 34.4734 kg

DRUGS (7)
  1. CHILDREN'S MOTRIN [Suspect]
     Indication: BACK PAIN
     Dosage: 3 TSP AS NEEDED PO
     Route: 048
     Dates: start: 20090801, end: 20100708
  2. CHILDREN'S MOTRIN [Suspect]
     Indication: BLOOD URINE PRESENT
     Dosage: 3 TSP AS NEEDED PO
     Route: 048
     Dates: start: 20090801, end: 20100708
  3. CHILDREN'S MOTRIN [Suspect]
     Indication: HEADACHE
     Dosage: 3 TSP AS NEEDED PO
     Route: 048
     Dates: start: 20090801, end: 20100708
  4. CHILDREN'S MOTRIN [Suspect]
     Indication: HYPERPYREXIA
     Dosage: 3 TSP AS NEEDED PO
     Route: 048
     Dates: start: 20090801, end: 20100708
  5. CHILDREN'S MOTRIN [Suspect]
     Indication: NAUSEA
     Dosage: 3 TSP AS NEEDED PO
     Route: 048
     Dates: start: 20090801, end: 20100708
  6. CHILDREN'S TYLENOL SUSPENSION [Suspect]
     Indication: BACK PAIN
     Dosage: 3 TSP AS NEEDED PO
     Route: 048
     Dates: start: 20090801, end: 20100708
  7. CHILDREN'S TYLENOL SUSPENSION [Suspect]
     Indication: HEADACHE
     Dosage: 3 TSP AS NEEDED PO
     Route: 048
     Dates: start: 20090801, end: 20100708

REACTIONS (8)
  - BACK PAIN [None]
  - BLOOD URINE PRESENT [None]
  - HEADACHE [None]
  - HYPERPYREXIA [None]
  - MULTIPLE ALLERGIES [None]
  - NAUSEA [None]
  - PRODUCT QUALITY ISSUE [None]
  - WHITE BLOOD CELL COUNT INCREASED [None]
